FAERS Safety Report 5420675-8 (Version None)
Quarter: 2007Q3

REPORT INFORMATION
  Report Type: 
  Country: None (occurrence: None)
  Receive Date: 20070821
  Receipt Date: 20070807
  Transmission Date: 20080115
  Serious: Yes (Hospitalization)
  Sender: FDA-Public Use
  Company Number: PHHO2007GB09240

PATIENT
  Age: 51 Year
  Sex: Male
  Weight: 90 kg

DRUGS (5)
  1. ZOLADEX [Suspect]
     Indication: METASTASES TO BONE
     Dosage: 10.8 MG
     Route: 048
     Dates: start: 20060426
  2. CALCIUM CHLORIDE [Concomitant]
  3. VITAMIN D [Concomitant]
  4. ZOL V ZOL + DOCETAXEL V ZOL + CELECOXIB [Suspect]
     Indication: METASTASES TO BONE
     Dosage: 4MG EVERY 3 WEEKS
     Route: 042
     Dates: start: 20060426
  5. CASODEX [Suspect]

REACTIONS (4)
  - BLADDER CATHETERISATION [None]
  - CATHETER PLACEMENT [None]
  - NOCTURIA [None]
  - URINARY TRACT OBSTRUCTION [None]
